FAERS Safety Report 20807570 (Version 1)
Quarter: 2022Q2

REPORT INFORMATION
  Report Type: Spontaneous
  Country: US (occurrence: None)
  Receive Date: 20220509
  Receipt Date: 20220509
  Transmission Date: 20220720
  Serious: No
  Sender: FDA-Public Use
  Company Number: None

PATIENT
  Sex: Female

DRUGS (1)
  1. RASUVO [Suspect]
     Active Substance: METHOTREXATE SODIUM
     Indication: Rheumatoid arthritis
     Dosage: 15MG ONCE EVERY WEEK UNDER THE SKIN?
     Route: 058
     Dates: start: 20220421

REACTIONS (2)
  - Drug ineffective [None]
  - Pain [None]
